FAERS Safety Report 6866426-1 (Version None)
Quarter: 2010Q3

REPORT INFORMATION
  Report Type: 
  Country: None (occurrence: None)
  Receive Date: 20100722
  Receipt Date: 20100713
  Transmission Date: 20110219
  Serious: Yes (Hospitalization)
  Sender: FDA-Public Use
  Company Number: AU-NOVOPROD-309944

PATIENT
  Age: 83 Year
  Sex: Female

DRUGS (2)
  1. NOVORAPID [Suspect]
     Indication: TYPE 2 DIABETES MELLITUS
     Dosage: 17 U, QD
     Route: 058
     Dates: start: 20080101
  2. LANTUS [Concomitant]
     Indication: TYPE 2 DIABETES MELLITUS
     Dosage: 5 U, QD
     Dates: start: 20080101

REACTIONS (6)
  - BLOOD GLUCOSE INCREASED [None]
  - DIABETES MELLITUS INADEQUATE CONTROL [None]
  - ENCEPHALITIS VIRAL [None]
  - HYPOGLYCAEMIA [None]
  - LIPOHYPERTROPHY [None]
  - LOSS OF CONSCIOUSNESS [None]
